FAERS Safety Report 5984083-3 (Version None)
Quarter: 2008Q4

REPORT INFORMATION
  Report Type: 
  Country: None (occurrence: None)
  Receive Date: 20081208
  Receipt Date: 20081124
  Transmission Date: 20090506
  Serious: Yes (Hospitalization, Other)
  Sender: FDA-Public Use
  Company Number: IT-ELI_LILLY_AND_COMPANY-IT200811005529

PATIENT
  Age: 64 Year
  Sex: Male

DRUGS (8)
  1. ALIMTA [Suspect]
     Indication: PLEURAL MESOTHELIOMA MALIGNANT
     Dosage: UNK, UNKNOWN
     Route: 065
     Dates: start: 20060701
  2. ALIMTA [Suspect]
     Dosage: 100 MG/M2, AT DAY 1, EVERY THREE WEEKS
     Route: 065
     Dates: start: 20070101
  3. ALIMTA [Suspect]
     Dosage: 150 MG/M2, UNKNOWN
     Route: 065
     Dates: start: 20070213
  4. ALIMTA [Suspect]
     Dosage: 200 MG/M2, UNKNOWN
     Route: 065
     Dates: start: 20080306
  5. CISPLATIN [Concomitant]
     Indication: PLEURAL MESOTHELIOMA MALIGNANT
     Dosage: UNK, UNKNOWN
     Route: 065
     Dates: start: 20060701
  6. VITAMIN B6 [Concomitant]
     Indication: SUPPLEMENTATION THERAPY
     Dosage: UNK, UNKNOWN
     Route: 065
     Dates: start: 20070213
  7. VITAMIN B-12 [Concomitant]
     Indication: SUPPLEMENTATION THERAPY
     Dosage: UNK, UNKNOWN
     Route: 065
     Dates: start: 20070213
  8. PREDNISONE TAB [Concomitant]
     Indication: PREMEDICATION
     Dosage: UNK, UNKNOWN
     Route: 065
     Dates: start: 20070213

REACTIONS (5)
  - DIFFUSE ALVEOLAR DAMAGE [None]
  - DRUG TOXICITY [None]
  - DYSPNOEA [None]
  - LUNG DISORDER [None]
  - PYREXIA [None]
